FAERS Safety Report 9314245 (Version 4)
Quarter: 2017Q1

REPORT INFORMATION
  Report Type: Report from Study
  Country: CA (occurrence: CA)
  Receive Date: 20130529
  Receipt Date: 20170208
  Transmission Date: 20170429
  Serious: Yes (Other)
  Sender: FDA-Public Use
  Company Number: PHHY2013CA053562

PATIENT
  Age: 57 Year
  Sex: Female

DRUGS (2)
  1. SANDOSTATIN LAR DEPOT [Suspect]
     Active Substance: OCTREOTIDE ACETATE
     Indication: NEUROENDOCRINE TUMOUR
     Dosage: 20 MG, QMO (EVERY FOUR WEEKS)
     Route: 030
     Dates: start: 20121219
  2. SANDOSTATIN LAR DEPOT [Suspect]
     Active Substance: OCTREOTIDE ACETATE
     Dosage: 30 MG, QMO (EVERY FOUR WEEKS)
     Route: 030
     Dates: start: 20140110

REACTIONS (17)
  - Body temperature decreased [Unknown]
  - Abdominal pain [Unknown]
  - Injection site pain [Unknown]
  - Fall [Unknown]
  - Blood pressure increased [Unknown]
  - Needle issue [Unknown]
  - Nasopharyngitis [Unknown]
  - Osteoporosis [Unknown]
  - Benign breast neoplasm [Unknown]
  - Sinus congestion [Unknown]
  - Eye infection [Recovered/Resolved]
  - Cough [Unknown]
  - Heart rate decreased [Unknown]
  - Blood pressure systolic increased [Unknown]
  - Injection site swelling [Unknown]
  - Blood pressure diastolic decreased [Unknown]
  - Back pain [Unknown]

NARRATIVE: CASE EVENT DATE: 20140206
